FAERS Safety Report 12615699 (Version 2)
Quarter: 2017Q3

REPORT INFORMATION
  Report Type: Spontaneous
  Country: US (occurrence: US)
  Receive Date: 20160802
  Receipt Date: 20170706
  Transmission Date: 20171127
  Serious: Yes (Hospitalization, Other)
  Sender: FDA-Public Use
  Company Number: US-PFIZER INC-2016033914

PATIENT
  Age: 37 Year
  Sex: Female
  Weight: 106.58 kg

DRUGS (7)
  1. NICOTROL [Concomitant]
     Active Substance: NICOTINE
     Indication: SMOKING CESSATION THERAPY
     Dosage: 10MG, 1 PUFF INTO THE LUNGS EVERY 3 HOURS AS NEEDED
     Route: 055
     Dates: start: 20160108
  2. NICOTROL [Concomitant]
     Active Substance: NICOTINE
     Indication: TOBACCO ABUSE
  3. BUTRANS [Concomitant]
     Active Substance: BUPRENORPHINE
     Indication: FIBROMYALGIA
     Dosage: UNK
  4. ADDERALL [Concomitant]
     Active Substance: AMPHETAMINE ASPARTATE\AMPHETAMINE SULFATE\DEXTROAMPHETAMINE SACCHARATE\DEXTROAMPHETAMINE SULFATE
     Indication: ATTENTION DEFICIT/HYPERACTIVITY DISORDER
     Dosage: UNK
  5. BUTRANS [Concomitant]
     Active Substance: BUPRENORPHINE
     Indication: PAIN
  6. LYRICA [Suspect]
     Active Substance: PREGABALIN
     Indication: PAIN
     Dosage: 150 MG, DAILY
     Route: 048
  7. LYRICA [Suspect]
     Active Substance: PREGABALIN
     Indication: NEURALGIA
     Dosage: 150 MG, 2X/DAY
     Route: 048
     Dates: start: 20160108

REACTIONS (5)
  - Arthropathy [Unknown]
  - Road traffic accident [Unknown]
  - Injury [Unknown]
  - Condition aggravated [Unknown]
  - Diabetes mellitus [Not Recovered/Not Resolved]

NARRATIVE: CASE EVENT DATE: 201706
